FAERS Safety Report 8582518 (Version 4)
Quarter: 2012Q4

REPORT INFORMATION
  Report Type: 
  Country: US (occurrence: US)
  Receive Date: 20120529
  Receipt Date: 20120914
  Transmission Date: 20130627
  Serious: No
  Sender: FDA-Public Use
  Company Number: US-PFIZER INC-2012124879

PATIENT
  Sex: Female

DRUGS (8)
  1. LYRICA [Suspect]
     Indication: FIBROMYALGIA
     Dosage: UNK
  2. LYRICA [Suspect]
     Dosage: 50 mg, 1x/day
     Route: 048
     Dates: start: 20090209
  3. LYRICA [Suspect]
     Dosage: 50 mg, 2x/day
     Route: 048
  4. LYRICA [Suspect]
     Dosage: 75 mg, 2x/day
     Route: 048
  5. LYRICA [Suspect]
     Dosage: 100 mg, 2x/day
     Route: 048
  6. LYRICA [Suspect]
     Dosage: 100 mg, 3x/day
     Route: 048
  7. LYRICA [Suspect]
     Dosage: 150 mg, 2x/day
     Route: 048
  8. NEURONTIN [Suspect]
     Dosage: UNK

REACTIONS (2)
  - Drug ineffective [Unknown]
  - Wrong technique in drug usage process [Unknown]
